FAERS Safety Report 7245071-2 (Version None)
Quarter: 2011Q1

REPORT INFORMATION
  Report Type: 
  Country: None (occurrence: None)
  Receive Date: 20110126
  Receipt Date: 20110124
  Transmission Date: 20110831
  Serious: Yes (Other)
  Sender: FDA-Public Use
  Company Number: US-JNJFOC-20101108912

PATIENT
  Age: 53 Year
  Sex: Male

DRUGS (1)
  1. DURAGESIC-50 [Suspect]
     Indication: PAIN
     Route: 062

REACTIONS (4)
  - LUNG CANCER METASTATIC [None]
  - PULMONARY EMBOLISM [None]
  - THROMBOSIS [None]
  - CHRONIC OBSTRUCTIVE PULMONARY DISEASE [None]
